FAERS Safety Report 9520108 (Version 1)
Quarter: 2013Q3

REPORT INFORMATION
  Report Type: Spontaneous
  Country: FR (occurrence: FR)
  Receive Date: 20130912
  Receipt Date: 20130912
  Transmission Date: 20140515
  Serious: Yes (Hospitalization)
  Sender: FDA-Public Use
  Company Number: PHHY2013FR100432

PATIENT
  Sex: 0

DRUGS (4)
  1. TEGRETOL LP [Suspect]
     Indication: PARANOIA
     Dosage: 200 MG, QD
     Route: 048
     Dates: start: 20130717, end: 20130717
  2. TEGRETOL LP [Suspect]
     Dosage: 600 MG, DAILY (200 + 400)
     Route: 048
     Dates: start: 20130718, end: 20130718
  3. TEGRETOL LP [Suspect]
     Dosage: 400 MG, BID
     Route: 048
     Dates: start: 20130719, end: 20130722
  4. TEGRETOL LP [Suspect]
     Dosage: 200 MG, BID
     Route: 048
     Dates: start: 20130723, end: 20130731

REACTIONS (4)
  - Oculogyric crisis [Recovered/Resolved with Sequelae]
  - Eye movement disorder [Recovered/Resolved with Sequelae]
  - Dystonia [Recovered/Resolved]
  - Vision blurred [Recovered/Resolved]
